FAERS Safety Report 11650781 (Version 1)
Quarter: 2015Q4

REPORT INFORMATION
  Report Type: Report from Study
  Country: FR (occurrence: FR)
  Receive Date: 20151021
  Receipt Date: 20151021
  Transmission Date: 20160304
  Serious: Yes (Death, Hospitalization, Other)
  Sender: FDA-Public Use
  Company Number: FR-BRISTOL-MYERS SQUIBB COMPANY-BMS-2015-068778

PATIENT
  Age: 76 Year
  Sex: Male
  Weight: 76 kg

DRUGS (9)
  1. DACLATASVIR DIHYDROCHLORIDE [Suspect]
     Active Substance: DACLATASVIR DIHYDROCHLORIDE
     Indication: CHRONIC HEPATITIS C
     Dosage: 60 MG, QD
     Route: 048
     Dates: start: 201402
  2. SOFOSBUVIR [Suspect]
     Active Substance: SOFOSBUVIR
     Indication: HEPATITIS C
     Dosage: 400 MG, QD
     Route: 048
     Dates: start: 201402
  3. SPIRONOLACTONE. [Concomitant]
     Active Substance: SPIRONOLACTONE
     Indication: ASCITES
     Dosage: 75 MG, QD
     Route: 065
  4. FUROSEMIDE. [Concomitant]
     Active Substance: FUROSEMIDE
     Indication: ASCITES
     Dosage: 40 MG, QD
     Route: 065
  5. APROVEL [Concomitant]
     Active Substance: IRBESARTAN
     Indication: PRODUCT USED FOR UNKNOWN INDICATION
     Route: 065
  6. NADOLOL. [Concomitant]
     Active Substance: NADOLOL
     Indication: SINUS BRADYCARDIA
     Dosage: UNK UNK, QD
     Route: 065
  7. IRBESARTAN. [Concomitant]
     Active Substance: IRBESARTAN
     Indication: HYPERTENSION
     Dosage: 150 MG, QD
     Route: 065
  8. FLUINDIONE [Concomitant]
     Active Substance: FLUINDIONE
     Indication: ATRIAL FLUTTER
     Dosage: 10 MG, QD
     Route: 065
  9. ACEBUTOLOL [Concomitant]
     Active Substance: ACEBUTOLOL
     Indication: VARICES OESOPHAGEAL
     Dosage: 80 MG, QD
     Route: 065

REACTIONS (4)
  - Renal failure [Not Recovered/Not Resolved]
  - Haematemesis [Recovered/Resolved]
  - Vomiting [Recovered/Resolved]
  - Death [Fatal]

NARRATIVE: CASE EVENT DATE: 201508
